FAERS Safety Report 26123537 (Version 1)
Quarter: 2025Q4

REPORT INFORMATION
  Report Type: Report from Study
  Country: EU (occurrence: EU)
  Receive Date: 20251204
  Receipt Date: 20251204
  Transmission Date: 20260119
  Serious: Yes (Life-Threatening)
  Sender: SANDOZ
  Company Number: EU-002147023-NVSC2024PT059734

PATIENT
  Age: 72 Year
  Sex: Male
  Weight: 63 kg

DRUGS (12)
  1. DOCETAXEL [Suspect]
     Active Substance: DOCETAXEL
     Indication: Non-small cell lung cancer
     Dosage: 140.25 MILLIGRAM
     Route: 065
     Dates: start: 20231220
  2. ALFUZOSIN [Concomitant]
     Active Substance: ALFUZOSIN
     Indication: Benign prostatic hyperplasia
     Dosage: UNK
     Route: 065
     Dates: start: 20231122
  3. CALCIUM CARBONATE [Concomitant]
     Active Substance: CALCIUM CARBONATE
     Indication: General physical condition
     Dosage: UNK
     Route: 065
     Dates: start: 20230915
  4. CHOLECALCIFEROL [Concomitant]
     Active Substance: CHOLECALCIFEROL
     Indication: General physical condition
     Dosage: UNK
     Route: 065
     Dates: start: 20230915
  5. EDOXABAN [Concomitant]
     Active Substance: EDOXABAN
     Indication: Thrombosis
     Dosage: UNK
     Route: 065
     Dates: start: 20231107
  6. ESOMEPRAZOLE [Concomitant]
     Active Substance: ESOMEPRAZOLE
     Indication: Gastrooesophageal reflux disease
     Dosage: UNK
     Route: 065
     Dates: start: 2003
  7. FILGRASTIM [Concomitant]
     Active Substance: FILGRASTIM
     Indication: Non-small cell lung cancer
     Dosage: UNK
     Route: 065
     Dates: start: 20240314
  8. MEGESTROL [Concomitant]
     Active Substance: MEGESTROL
     Indication: General physical condition
     Dosage: UNK
     Route: 065
     Dates: start: 20231009
  9. PERINDOPRIL [Concomitant]
     Active Substance: PERINDOPRIL
     Indication: Hypertension
     Dosage: UNK
     Route: 065
     Dates: start: 2009
  10. PREDNISOLONE [Concomitant]
     Active Substance: PREDNISOLONE
     Indication: Non-small cell lung cancer
     Dosage: UNK
     Route: 065
     Dates: start: 20240312, end: 20240314
  11. SOLIFENACIN SUCCINATE [Concomitant]
     Active Substance: SOLIFENACIN SUCCINATE
     Indication: Benign prostatic hyperplasia
     Dosage: UNK
     Route: 065
     Dates: start: 20231122
  12. TAPENTADOL [Concomitant]
     Active Substance: TAPENTADOL
     Indication: General physical condition
     Dosage: UNK
     Route: 065
     Dates: start: 202308

REACTIONS (1)
  - Renal failure [Not Recovered/Not Resolved]

NARRATIVE: CASE EVENT DATE: 20240318
